FAERS Safety Report 5800914-1 (Version None)
Quarter: 2008Q3

REPORT INFORMATION
  Report Type: 
  Country: None (occurrence: None)
  Receive Date: 20080701
  Receipt Date: 20080617
  Transmission Date: 20090109
  Serious: Yes (Death, Other)
  Sender: FDA-Public Use
  Company Number: 2008AL007439

PATIENT
  Age: 49 Year
  Sex: Male

DRUGS (4)
  1. DIAZEPAM    10 MG (PUREPAC) [Suspect]
     Dosage: PO
     Route: 048
  2. CARBAMAZEPINE TABLETS UPS, [Suspect]
     Dosage: PO
     Route: 048
  3. QUETIAPINE FUMARATE [Concomitant]
  4. PAREGORIC LIQUID USP [Suspect]
     Dosage: PO
     Route: 048

REACTIONS (2)
  - COMPLETED SUICIDE [None]
  - MULTIPLE DRUG OVERDOSE [None]
